FAERS Safety Report 5951582-X (Version None)
Quarter: 2008Q4

REPORT INFORMATION
  Report Type: 
  Country: None (occurrence: None)
  Receive Date: 20081113
  Receipt Date: 20081104
  Transmission Date: 20090506
  Serious: Yes (Hospitalization)
  Sender: FDA-Public Use
  Company Number: PHHY2008FR27335

PATIENT
  Sex: Male

DRUGS (3)
  1. LAMISIL [Suspect]
     Indication: ONYCHOMYCOSIS
  2. SURGAM [Suspect]
     Indication: CYST
     Dosage: UNK
     Dates: start: 20080718, end: 20080723
  3. LAMOTRIGINE [Suspect]
     Dosage: UNK
     Dates: start: 20080718, end: 20080804

REACTIONS (13)
  - CONJUNCTIVAL HYPERAEMIA [None]
  - DERMATITIS BULLOUS [None]
  - DERMATOSIS [None]
  - DRUG ADMINISTRATION ERROR [None]
  - ERYTHEMA [None]
  - MOUTH ULCERATION [None]
  - MUCOSAL EROSION [None]
  - NAIL BED INFECTION [None]
  - ODYNOPHAGIA [None]
  - PALATAL DISORDER [None]
  - PYREXIA [None]
  - RASH PAPULAR [None]
  - STEVENS-JOHNSON SYNDROME [None]
